FAERS Safety Report 5656781-2 (Version None)
Quarter: 2008Q1

REPORT INFORMATION
  Report Type: 
  Country: None (occurrence: None)
  Receive Date: 20080310
  Receipt Date: 20080225
  Transmission Date: 20080703
  Serious: Yes (Hospitalization)
  Sender: FDA-Public Use
  Company Number: FR-AMGEN-UK266971

PATIENT
  Age: 19 Year
  Sex: Male

DRUGS (5)
  1. NEUPOGEN [Suspect]
     Indication: PRE-EXISTING DISEASE
     Route: 058
     Dates: start: 20071026
  2. POSACONAZOLE [Suspect]
     Route: 048
     Dates: start: 20071107
  3. VISTIDE [Suspect]
     Route: 048
     Dates: start: 20071130
  4. DESFERAL [Suspect]
     Route: 042
     Dates: start: 20071204, end: 20071210
  5. MABCAMPATH (ILEX PHARMACEUTICALS) [Concomitant]

REACTIONS (1)
  - PULMONARY HYPERTENSION [None]
